FAERS Safety Report 9195415 (Version 1)
Quarter: 2013Q1

REPORT INFORMATION
  Report Type: Spontaneous
  Country: US (occurrence: US)
  Receive Date: 20130328
  Receipt Date: 20130328
  Transmission Date: 20140127
  Serious: No
  Sender: FDA-Public Use
  Company Number: US-ALLERGAN-1301239US

PATIENT
  Sex: Female

DRUGS (5)
  1. LUMIGAN? 0.01% [Suspect]
     Indication: GLAUCOMA
     Dosage: 2 GTT, QHS
     Route: 047
     Dates: start: 20130115
  2. DORZOLAMIDE [Concomitant]
     Indication: GLAUCOMA
     Dosage: 2 GTT, BID
     Route: 047
  3. SYNTHROID [Concomitant]
     Indication: HYPOTHYROIDISM
     Dosage: 0.88 MG, UNK
     Route: 048
     Dates: start: 1984
  4. SIMVASTATIN [Concomitant]
     Indication: BLOOD CHOLESTEROL INCREASED
     Dosage: UNK UNK, QD
     Route: 048
  5. MEDICATION FOR HYPERTENSION NOS [Concomitant]
     Indication: HYPERTENSION
     Dosage: 2.5 MG, QD
     Route: 048
     Dates: start: 2012

REACTIONS (2)
  - Erythema [Not Recovered/Not Resolved]
  - Erythema of eyelid [Not Recovered/Not Resolved]
